FAERS Safety Report 8933908 (Version 1)
Quarter: 2012Q4

REPORT INFORMATION
  Report Type: 
  Country: PH (occurrence: PH)
  Receive Date: 20121129
  Receipt Date: 20121129
  Transmission Date: 20130627
  Serious: Yes (Hospitalization)
  Sender: FDA-Public Use
  Company Number: PH-B.I. PHARMACEUTICALS,INC./RIDGEFIELD-2012-CS-01627RP

PATIENT
  Age: 78 Year
  Sex: Female

DRUGS (3)
  1. TRAJENTA [Suspect]
     Indication: DIABETES MELLITUS
     Dosage: 5 mg
     Route: 048
     Dates: start: 201210, end: 201210
  2. ANTIBIOTIC [Concomitant]
     Indication: URINARY TRACT INFECTION
     Dates: start: 201210, end: 201210
  3. ANTIBIOTIC [Concomitant]
     Indication: SEPSIS

REACTIONS (1)
  - Abnormal behaviour [Recovered/Resolved]
